FAERS Safety Report 4480121-8 (Version None)
Quarter: 2004Q4

REPORT INFORMATION
  Report Type: 
  Country: None (occurrence: None)
  Receive Date: 20041020
  Receipt Date: 20041012
  Transmission Date: 20050328
  Serious: Yes (Congenital Anomaly)
  Sender: FDA-Public Use
  Company Number: US-MERCK-0410USA01925

PATIENT

DRUGS (1)
  1. FOSAMAX [Suspect]

REACTIONS (3)
  - DRUG EXPOSURE DURING PREGNANCY [None]
  - HIP DYSPLASIA [None]
  - PREGNANCY [None]
